FAERS Safety Report 6269213-0 (Version None)
Quarter: 2009Q3

REPORT INFORMATION
  Report Type: 
  Country: None (occurrence: None)
  Receive Date: 20090715
  Receipt Date: 20090707
  Transmission Date: 20100115
  Serious: Yes (Other)
  Sender: FDA-Public Use
  Company Number: US-TEVA-028600

PATIENT
  Sex: Female

DRUGS (1)
  1. CLARAVIS [Suspect]
     Dosage: 30 MG, BID
     Route: 048
     Dates: start: 20080502, end: 20080522

REACTIONS (2)
  - ABORTION SPONTANEOUS [None]
  - UNINTENDED PREGNANCY [None]
